FAERS Safety Report 6301972-0 (Version None)
Quarter: 2009Q3

REPORT INFORMATION
  Report Type: 
  Country: None (occurrence: None)
  Receive Date: 20090807
  Receipt Date: 20090805
  Transmission Date: 20100115
  Serious: Yes (Life-Threatening, Hospitalization, Other)
  Sender: FDA-Public Use
  Company Number: PHHO2009CA06797

PATIENT
  Sex: Male
  Weight: 76 kg

DRUGS (4)
  1. AMN107 AMN+CAP [Suspect]
     Indication: CHRONIC MYELOID LEUKAEMIA
     Dosage: 400MG BID
     Route: 048
     Dates: start: 20080714, end: 20090601
  2. AMN107 AMN+CAP [Suspect]
     Dosage: 400 MG, QD
     Route: 048
     Dates: start: 20090617, end: 20090706
  3. AMN107 AMN+CAP [Suspect]
     Dosage: 400 MG, BID
     Route: 048
     Dates: start: 20090707
  4. KEPPRA [Concomitant]

REACTIONS (7)
  - ACUTE MYOCARDIAL INFARCTION [None]
  - ANGINA PECTORIS [None]
  - ANGIOPATHY [None]
  - CARDIAC MURMUR [None]
  - CATHETERISATION CARDIAC [None]
  - MYOCARDIAL ISCHAEMIA [None]
  - PULSE ABNORMAL [None]
